FAERS Safety Report 7985717-4 (Version None)
Quarter: 2011Q4

REPORT INFORMATION
  Report Type: 
  Country: None (occurrence: None)
  Receive Date: 20111216
  Receipt Date: 20111216
  Transmission Date: 20120403
  Serious: Yes (Other)
  Sender: FDA-Public Use
  Company Number: None

PATIENT
  Age: 60 Year
  Sex: Female
  Weight: 58.059 kg

DRUGS (1)
  1. PROLIA [Suspect]
     Indication: BONE LOSS
     Dosage: 1
     Route: 058
     Dates: start: 20110629, end: 20111215

REACTIONS (2)
  - MUSCLE SPASMS [None]
  - INSOMNIA [None]
